FAERS Safety Report 24418076 (Version 1)
Quarter: 2024Q4

REPORT INFORMATION
  Report Type: Spontaneous
  Country: US (occurrence: US)
  Receive Date: 20241009
  Receipt Date: 20241009
  Transmission Date: 20250115
  Serious: No
  Sender: MYLAN
  Company Number: US-MYLANLABS-2024M1089106

PATIENT
  Sex: Female

DRUGS (1)
  1. RYZUMVI [Suspect]
     Active Substance: PHENTOLAMINE MESYLATE
     Indication: Product used for unknown indication
     Dosage: UNK
     Route: 065

REACTIONS (1)
  - Erythema [Unknown]
